FAERS Safety Report 9553906 (Version 2)
Quarter: 2013Q3

REPORT INFORMATION
  Report Type: Report from Study
  Country: TH (occurrence: TH)
  Receive Date: 20130925
  Receipt Date: 20130925
  Transmission Date: 20140515
  Serious: Yes (Life-Threatening, Hospitalization, Other)
  Sender: FDA-Public Use
  Company Number: PHHO2012TH013648

PATIENT
  Age: 30 Year
  Sex: Female
  Weight: 51 kg

DRUGS (1)
  1. FTY 720 [Suspect]
     Indication: MULTIPLE SCLEROSIS
     Dosage: 0.5 MG, QD
     Route: 048
     Dates: start: 20120919, end: 20120920

REACTIONS (4)
  - Atrioventricular block second degree [Recovering/Resolving]
  - Blood pressure fluctuation [Unknown]
  - Heart rate decreased [Unknown]
  - Chest discomfort [Unknown]
